FAERS Safety Report 4509145-9 (Version None)
Quarter: 2004Q4

REPORT INFORMATION
  Report Type: 
  Country: None (occurrence: None)
  Receive Date: 20041025
  Receipt Date: 20040301
  Transmission Date: 20050328
  Serious: Yes (Hospitalization)
  Sender: FDA-Public Use
  Company Number: NSADSS2003011474

PATIENT
  Age: 33 Year
  Sex: Female
  Weight: 101.6057 kg

DRUGS (5)
  1. REMICADE [Suspect]
     Indication: CROHN'S DISEASE
     Dosage: 800 MG, 1 IN 1 AS NECESSARY, INTRAVENOUS DRIP
     Route: 041
     Dates: start: 20021211
  2. PREDNISONE [Concomitant]
  3. PURINETHOL [Concomitant]
  4. ASCOL (MESALAZINE) [Concomitant]
  5. CIPRO [Concomitant]

REACTIONS (1)
  - CYTOMEGALOVIRUS INFECTION [None]
